FAERS Safety Report 14842485 (Version 4)
Quarter: 2019Q2

REPORT INFORMATION
  Report Type: Spontaneous
  Country: US (occurrence: US)
  Receive Date: 20180503
  Receipt Date: 20190508
  Transmission Date: 20190711
  Serious: Yes (Other)
  Sender: FDA-Public Use
  Company Number: US-PFIZER INC-2018182230

PATIENT
  Age: 56 Year
  Sex: Female

DRUGS (16)
  1. RANITIDINE. [Concomitant]
     Active Substance: RANITIDINE
     Dosage: UNK
  2. PREVACID [Suspect]
     Active Substance: LANSOPRAZOLE
     Indication: GASTROOESOPHAGEAL REFLUX DISEASE
     Dosage: UNK
  3. NEXIUM [Suspect]
     Active Substance: ESOMEPRAZOLE MAGNESIUM
     Indication: GASTROOESOPHAGEAL REFLUX DISEASE
     Dosage: 40 MG, UNK
     Dates: start: 2000, end: 2013
  4. ESOMEPRAZOLE. [Suspect]
     Active Substance: ESOMEPRAZOLE MAGNESIUM
     Dosage: UNK
  5. CIMETIDINE [Concomitant]
     Active Substance: CIMETIDINE
     Dosage: UNK
  6. PEPCID [Concomitant]
     Active Substance: FAMOTIDINE
     Dosage: UNK
  7. TAGAMET HB (OTC) [Concomitant]
     Dosage: UNK
  8. PRILOSEC [Suspect]
     Active Substance: OMEPRAZOLE MAGNESIUM
     Indication: GASTROOESOPHAGEAL REFLUX DISEASE
     Dosage: UNK
     Dates: start: 2000, end: 2013
  9. ZANTAC [Concomitant]
     Active Substance: RANITIDINE HYDROCHLORIDE
     Dosage: UNK
  10. TYLENOL [Concomitant]
     Active Substance: ACETAMINOPHEN
     Indication: PYREXIA
     Dosage: UNK
  11. OMEPRAZOLE + SODIUM [Suspect]
     Active Substance: OMEPRAZOLE SODIUM
     Indication: GASTROOESOPHAGEAL REFLUX DISEASE
     Dosage: 40 MG, UNK
  12. VITAMIN D NOS [Concomitant]
     Active Substance: VITAMIN D NOS
     Indication: HYPOVITAMINOSIS
     Dosage: UNK
     Dates: start: 2017
  13. CIMETIDINE (OTC) [Concomitant]
     Dosage: UNK
  14. PEPCID AC [Concomitant]
     Active Substance: FAMOTIDINE
     Dosage: UNK
  15. PROTONIX [Suspect]
     Active Substance: PANTOPRAZOLE SODIUM
     Indication: GASTROOESOPHAGEAL REFLUX DISEASE
     Dosage: 40 MG, UNK
     Dates: start: 2005, end: 2008
  16. ZANTAC 150 (OTC) [Concomitant]
     Dosage: UNK

REACTIONS (1)
  - Chronic kidney disease [Not Recovered/Not Resolved]

NARRATIVE: CASE EVENT DATE: 2011
